FAERS Safety Report 5130166-X (Version None)
Quarter: 2006Q4

REPORT INFORMATION
  Report Type: 
  Country: None (occurrence: None)
  Receive Date: 20061013
  Receipt Date: 20061002
  Transmission Date: 20070319
  Serious: Yes (Hospitalization)
  Sender: FDA-Public Use
  Company Number: CIP06002169

PATIENT
  Age: 69 Year
  Sex: Female

DRUGS (4)
  1. MACROBID [Suspect]
     Indication: URINARY TRACT INFECTION
     Dosage: ORAL
     Route: 048
     Dates: start: 20060205, end: 20060201
  2. ZOFRAN [Concomitant]
  3. INSULIN (INSULIN) [Concomitant]
  4. PERCOCET [Concomitant]

REACTIONS (17)
  - ABDOMINAL PAIN [None]
  - ABDOMINAL PAIN UPPER [None]
  - ASCITES [None]
  - BILIARY DILATATION [None]
  - BUNDLE BRANCH BLOCK RIGHT [None]
  - CHEST PAIN [None]
  - CULTURE URINE POSITIVE [None]
  - HYPERHIDROSIS [None]
  - INTERNATIONAL NORMALISED RATIO INCREASED [None]
  - LYMPHADENOPATHY [None]
  - MALIGNANT NEOPLASM PROGRESSION [None]
  - METASTASES TO ADRENALS [None]
  - METASTASES TO LIVER [None]
  - MYOCARDIAL INFARCTION [None]
  - PLEURITIC PAIN [None]
  - RED BLOOD CELL COUNT DECREASED [None]
  - TUMOUR INVASION [None]
